FAERS Safety Report 23725776 (Version 2)
Quarter: 2024Q2

REPORT INFORMATION
  Report Type: Spontaneous
  Country: PT (occurrence: PT)
  Receive Date: 20240410
  Receipt Date: 20240605
  Transmission Date: 20240716
  Serious: Yes (Other)
  Sender: FDA-Public Use
  Company Number: None

PATIENT
  Age: 53 Year
  Sex: Female
  Weight: 69 kg

DRUGS (4)
  1. BUDESONIDE [Suspect]
     Active Substance: BUDESONIDE
     Indication: Cough
     Dosage: TIME INTERVAL: TOTAL: IN THE CONTEXT OF AN EMERGENCY SERVICE, BUDESONIDA
     Route: 055
     Dates: start: 20240226, end: 20240226
  2. Co-Amlessa [Concomitant]
     Indication: Product used for unknown indication
     Route: 048
  3. ALBUTEROL [Suspect]
     Active Substance: ALBUTEROL
     Indication: Cough
     Dosage: TIME INTERVAL: TOTAL: EMERGENCY SERVICE
     Route: 055
     Dates: start: 20240226, end: 20240226
  4. IPRATROPIUM [Suspect]
     Active Substance: IPRATROPIUM
     Indication: Cough
     Dosage: TIME INTERVAL: TOTAL: IPRATROPIUM BROMIDE, EMERGENCY SERVICE
     Route: 055
     Dates: start: 20240226, end: 20240226

REACTIONS (1)
  - Urticaria [Recovered/Resolved]

NARRATIVE: CASE EVENT DATE: 20240226
